FAERS Safety Report 26168412 (Version 1)
Quarter: 2025Q4

REPORT INFORMATION
  Report Type: Spontaneous
  Country: US (occurrence: US)
  Receive Date: 20251217
  Receipt Date: 20251217
  Transmission Date: 20260117
  Serious: No
  Sender: ROCHE
  Company Number: US-ROCHE-10000453160

PATIENT
  Sex: Female

DRUGS (1)
  1. OCREVUS [Suspect]
     Active Substance: OCRELIZUMAB
     Indication: Multiple sclerosis
     Route: 042
     Dates: start: 202409

REACTIONS (4)
  - Crying [Recovering/Resolving]
  - Frustration tolerance decreased [Recovering/Resolving]
  - Depression [Recovering/Resolving]
  - Tremor [Recovering/Resolving]
